FAERS Safety Report 23581081 (Version 1)
Quarter: 2024Q1

REPORT INFORMATION
  Report Type: Spontaneous
  Country: US (occurrence: US)
  Receive Date: 20240229
  Receipt Date: 20240229
  Transmission Date: 20240410
  Serious: Yes (Other)
  Sender: FDA-Public Use
  Company Number: US-BAYER-2024A030186

PATIENT
  Age: 79 Year
  Sex: Female

DRUGS (1)
  1. AFRIN ORIGINAL NASAL [Suspect]
     Active Substance: OXYMETAZOLINE HYDROCHLORIDE
     Indication: Prophylaxis
     Dosage: UNK UNK, BID
     Route: 045

REACTIONS (2)
  - Drug dependence [Recovered/Resolved]
  - Incorrect product administration duration [Recovered/Resolved]
